FAERS Safety Report 11195696 (Version 1)
Quarter: 2015Q2

REPORT INFORMATION
  Report Type: Spontaneous
  Country: US (occurrence: None)
  Receive Date: 20150616
  Receipt Date: 20150616
  Transmission Date: 20150821
  Serious: Yes (Other)
  Sender: FDA-Public Use
  Company Number: None

PATIENT
  Age: 45 Year
  Sex: Female
  Weight: 104.33 kg

DRUGS (1)
  1. XELODA [Suspect]
     Active Substance: CAPECITABINE
     Indication: RECTOSIGMOID CANCER
     Dosage: 3 A.M./4 PM
     Route: 048
     Dates: start: 20150605

REACTIONS (4)
  - Wound [None]
  - Burning sensation [None]
  - Skin exfoliation [None]
  - Haemorrhage [None]

NARRATIVE: CASE EVENT DATE: 20150605
